FAERS Safety Report 15469985 (Version 1)
Quarter: 2018Q4

REPORT INFORMATION
  Report Type: Spontaneous
  Country: US (occurrence: US)
  Receive Date: 20181005
  Receipt Date: 20181005
  Transmission Date: 20190205
  Serious: Yes (Hospitalization, Other)
  Sender: FDA-Public Use
  Company Number: US-JNJFOC-20181005206

PATIENT
  Age: 69 Year
  Sex: Female

DRUGS (1)
  1. INVOKANA [Suspect]
     Active Substance: CANAGLIFLOZIN
     Indication: TYPE 2 DIABETES MELLITUS
     Route: 048
     Dates: start: 20160408, end: 20160621

REACTIONS (6)
  - Osteomyelitis [Unknown]
  - Renal failure [Recovered/Resolved]
  - Toe amputation [Unknown]
  - Gangrene [Unknown]
  - Diabetic foot infection [Unknown]
  - Diabetic foot [Unknown]

NARRATIVE: CASE EVENT DATE: 201605
